FAERS Safety Report 17448347 (Version 1)
Quarter: 2020Q1

REPORT INFORMATION
  Report Type: Spontaneous
  Country: IT (occurrence: IT)
  Receive Date: 20200223
  Receipt Date: 20200223
  Transmission Date: 20200409
  Serious: Yes (Hospitalization, Other)
  Sender: FDA-Public Use
  Company Number: IT-BRISTOL-MYERS SQUIBB COMPANY-BMS-2020-013065

PATIENT
  Age: 79 Year
  Sex: Male
  Weight: 68 kg

DRUGS (1)
  1. COUMADIN [Suspect]
     Active Substance: WARFARIN SODIUM
     Indication: INTRACARDIAC THROMBUS
     Dosage: 5 MILLIGRAM
     Route: 048
     Dates: end: 20200116

REACTIONS (3)
  - Blood loss anaemia [Recovered/Resolved]
  - Epistaxis [Recovered/Resolved]
  - Haematoma [Recovered/Resolved]

NARRATIVE: CASE EVENT DATE: 20200116
